FAERS Safety Report 13946881 (Version 1)
Quarter: 2017Q3

REPORT INFORMATION
  Report Type: Spontaneous
  Country: US (occurrence: US)
  Receive Date: 20170907
  Receipt Date: 20170907
  Transmission Date: 20171128
  Serious: Yes (Hospitalization, Other)
  Sender: FDA-Public Use
  Company Number: US-ZYDUS-016354

PATIENT
  Age: 25 Month
  Sex: Male

DRUGS (1)
  1. MORPHINE/MORPHINE HYDROCHLORIDE/MORPHINE SULFATE/MORPHINE TARTRATE [Suspect]
     Active Substance: MORPHINE\MORPHINE HYDROCHLORIDE\MORPHINE SULFATE\MORPHINE TARTRATE
     Indication: PRODUCT USED FOR UNKNOWN INDICATION
     Route: 048

REACTIONS (13)
  - Accidental overdose [Unknown]
  - Pupillary reflex impaired [Recovered/Resolved]
  - Hyperreflexia [Recovered/Resolved]
  - Accidental exposure to product by child [None]
  - Brain oedema [Recovered/Resolved]
  - Apnoea [Recovered/Resolved]
  - Hydrocephalus [Recovered/Resolved]
  - Toxicity to various agents [Recovered/Resolved]
  - Brain herniation [Recovered/Resolved]
  - Respiratory rate decreased [Recovered/Resolved]
  - Unresponsive to stimuli [Recovered/Resolved]
  - Pulse absent [Recovered/Resolved]
  - Hypoperfusion [Recovered/Resolved]
